FAERS Safety Report 19182119 (Version 1)
Quarter: 2021Q2

REPORT INFORMATION
  Report Type: Report from Study
  Country: US (occurrence: US)
  Receive Date: 20210426
  Receipt Date: 20210426
  Transmission Date: 20210717
  Serious: Yes (Hospitalization)
  Sender: FDA-Public Use
  Company Number: US-EISAI MEDICAL RESEARCH-EC-2021-090497

PATIENT
  Age: 65 Year
  Sex: Female

DRUGS (4)
  1. LENVIMA [Suspect]
     Active Substance: LENVATINIB
     Indication: UTERINE CANCER
     Route: 048
     Dates: start: 20210319, end: 20210411
  2. KEYTRUDA [Concomitant]
     Active Substance: PEMBROLIZUMAB
     Indication: PRODUCT USED FOR UNKNOWN INDICATION
     Dosage: DOSE UNKNOWN
     Dates: start: 20210326
  3. LENVIMA [Suspect]
     Active Substance: LENVATINIB
     Route: 048
     Dates: start: 20210412
  4. METOPROLOL. [Concomitant]
     Active Substance: METOPROLOL

REACTIONS (9)
  - Fatigue [Not Recovered/Not Resolved]
  - Pulmonary embolism [Recovering/Resolving]
  - Nausea [Recovering/Resolving]
  - Renal pain [Unknown]
  - Urinary tract infection [Unknown]
  - Constipation [Unknown]
  - Asthenia [Unknown]
  - Pleural effusion [Unknown]
  - Epistaxis [Unknown]

NARRATIVE: CASE EVENT DATE: 20210329
